FAERS Safety Report 5941638-X (Version None)
Quarter: 2008Q4

REPORT INFORMATION
  Report Type: 
  Country: None (occurrence: None)
  Receive Date: 20081104
  Receipt Date: 20081104
  Transmission Date: 20090506
  Serious: Yes (Life-Threatening, Disabling, Other)
  Sender: FDA-Public Use
  Company Number: None

PATIENT
  Age: 21 Year
  Sex: Female
  Weight: 113.3993 kg

DRUGS (1)
  1. ABILIFY [Suspect]
     Indication: MAJOR DEPRESSION
     Dosage: 10MG ONCE A DAY
     Dates: start: 20080201, end: 20080729

REACTIONS (4)
  - ABNORMAL BEHAVIOUR [None]
  - SELF INJURIOUS BEHAVIOUR [None]
  - SOMNOLENCE [None]
  - SUICIDAL IDEATION [None]
